FAERS Safety Report 6068193-0 (Version None)
Quarter: 2009Q1

REPORT INFORMATION
  Report Type: 
  Country: None (occurrence: None)
  Receive Date: 20090206
  Receipt Date: 20080409
  Transmission Date: 20090719
  Serious: Yes (Death, Hospitalization)
  Sender: FDA-Public Use
  Company Number: DE-AMGEN-UK214141

PATIENT
  Sex: Male

DRUGS (7)
  1. PALIFERMIN [Suspect]
     Indication: MUCOSAL INFLAMMATION
     Dates: start: 20061215
  2. PANTOZOL [Concomitant]
     Route: 042
  3. NOVALGIN [Concomitant]
     Route: 042
  4. NUTRIFLEX [Concomitant]
  5. CLEXANE [Concomitant]
     Route: 058
  6. MORPHINE [Concomitant]
  7. NUTRITIONAL SUPPLEMENT [Concomitant]

REACTIONS (2)
  - MALIGNANT PERITONEAL NEOPLASM [None]
  - PNEUMONIA ASPIRATION [None]
